FAERS Safety Report 13393676 (Version 1)
Quarter: 2017Q1

REPORT INFORMATION
  Report Type: Spontaneous
  Country: US (occurrence: US)
  Receive Date: 20170331
  Receipt Date: 20170331
  Transmission Date: 20170429
  Serious: Yes (Other)
  Sender: FDA-Public Use
  Company Number: US-COVIS PHARMA S.A.R.L.-2017COV00008

PATIENT
  Age: 53 Year
  Sex: Female

DRUGS (2)
  1. DIGOXIN. [Suspect]
     Active Substance: DIGOXIN
     Indication: TACHYCARDIA
     Route: 065
  2. UNSPECIFIED DIURETIC [Concomitant]
     Active Substance: UNSPECIFIED INGREDIENT
     Indication: TACHYCARDIA
     Route: 065

REACTIONS (2)
  - Tachycardia [Recovering/Resolving]
  - Toxicity to various agents [Unknown]
